FAERS Safety Report 14884652 (Version 2)
Quarter: 2018Q2

REPORT INFORMATION
  Report Type: Spontaneous
  Country: JP (occurrence: JP)
  Receive Date: 20180511
  Receipt Date: 20180619
  Transmission Date: 20180711
  Serious: Yes (Other)
  Sender: FDA-Public Use
  Company Number: JP-009507513-1805JPN004802

PATIENT
  Age: 66 Year
  Sex: Female

DRUGS (3)
  1. GLACTIV [Suspect]
     Active Substance: SITAGLIPTIN
     Dosage: 25 MG QD ; STRENGTH: 12.5MG,25MG,50MG,100MG; 25 MG, QD
     Route: 048
     Dates: start: 201611
  2. GLACTIV [Suspect]
     Active Substance: SITAGLIPTIN
     Indication: TYPE 2 DIABETES MELLITUS
     Dosage: 50 MG, QD; STRENGTH: 12.5MG,25MG,50MG,100MG;
     Route: 048
     Dates: start: 201608
  3. GLACTIV [Suspect]
     Active Substance: SITAGLIPTIN
     Dosage: 12.5 MG QD; STRENGTH: 12.5MG,25MG,50MG,100MG;
     Route: 048
     Dates: start: 201711

REACTIONS (1)
  - Diabetic retinopathy [Unknown]
